FAERS Safety Report 25952004 (Version 1)
Quarter: 2025Q4

REPORT INFORMATION
  Report Type: Spontaneous
  Country: CN (occurrence: CN)
  Receive Date: 20251023
  Receipt Date: 20251023
  Transmission Date: 20260117
  Serious: Yes (Hospitalization)
  Sender: JOHNSON AND JOHNSON
  Company Number: CN-JNJFOC-20251021165

PATIENT
  Age: 75 Year
  Sex: Male
  Weight: 65 kg

DRUGS (6)
  1. DARZALEX [Suspect]
     Active Substance: DARATUMUMAB
     Indication: Pneumonia
     Dosage: MEDICATION DOSES- 1, 1000 MG ON DAYS 1 AND 8
     Route: 041
     Dates: start: 20250912, end: 20250919
  2. DARZALEX [Suspect]
     Active Substance: DARATUMUMAB
     Indication: Plasma cell myeloma
  3. VELCADE [Suspect]
     Active Substance: BORTEZOMIB
     Indication: Pneumonia
     Dosage: 2.3 MG ON DAY 1 AND 2 MG ON DAYS 4, 8, AND 11. MEDICATION DOSES-1, MEDICATION DAYS-3
     Route: 058
     Dates: start: 20250912, end: 20250922
  4. VELCADE [Suspect]
     Active Substance: BORTEZOMIB
     Indication: Plasma cell myeloma
  5. DEXAMETHASONE SODIUM PHOSPHATE [Suspect]
     Active Substance: DEXAMETHASONE SODIUM PHOSPHATE
     Indication: Pneumonia
     Dosage: 20 MG ON DAYS 1-2, 4-5, 8-9, AND 11-12. MEDICATION DOSES 1, MEDICATION DAYS 1
     Route: 041
     Dates: start: 20250912, end: 20250923
  6. DEXAMETHASONE SODIUM PHOSPHATE [Suspect]
     Active Substance: DEXAMETHASONE SODIUM PHOSPHATE
     Indication: Plasma cell myeloma

REACTIONS (1)
  - Myelosuppression [Recovering/Resolving]

NARRATIVE: CASE EVENT DATE: 20250926
